FAERS Safety Report 25740447 (Version 2)
Quarter: 2025Q4

REPORT INFORMATION
  Report Type: Report from Study
  Country: US (occurrence: US)
  Receive Date: 20250829
  Receipt Date: 20251221
  Transmission Date: 20260118
  Serious: No
  Sender: MERCK SHARP & DOHME LLC
  Company Number: US-009507513-2323440

PATIENT
  Sex: Female
  Weight: 84.2 kg

DRUGS (13)
  1. WINREVAIR [Suspect]
     Active Substance: SOTATERCEPT-CSRK
     Indication: Pulmonary arterial hypertension
     Route: 058
     Dates: start: 20250816
  2. WINREVAIR [Suspect]
     Active Substance: SOTATERCEPT-CSRK
     Dosage: UNK
     Route: 058
  3. WINREVAIR [Suspect]
     Active Substance: SOTATERCEPT-CSRK
  4. WINREVAIR [Suspect]
     Active Substance: SOTATERCEPT-CSRK
  5. ADEMPAS [Suspect]
     Active Substance: RIOCIGUAT
  6. REMODULIN [Suspect]
     Active Substance: TREPROSTINIL
     Indication: Pulmonary arterial hypertension
     Dosage: 0.028 UG/KG (SELF-FILL WITH 2.5ML PER CASSETTE; RATE 28 MCL PER HOUR), CONTINUOUS CONCENTRATION: ...
     Route: 058
     Dates: start: 2025
  7. REMODULIN [Suspect]
     Active Substance: TREPROSTINIL
     Indication: Pulmonary arterial hypertension
     Dosage: UNK, CONTINUING, SUBCUTANEOUS USE, CONCENTRATION 5.0 MG/ML, DELIVERED VIA REMUNITY [SELF-FILLED] ...
     Route: 058
     Dates: start: 20250113
  8. VITAMINS [Concomitant]
     Active Substance: VITAMINS
  9. SODIUM CHLORIDE [Concomitant]
     Active Substance: SODIUM CHLORIDE
  10. SILDENAFIL CITRATE [Concomitant]
     Active Substance: SILDENAFIL CITRATE
  11. NIFEDIPINE [Concomitant]
     Active Substance: NIFEDIPINE
  12. ASPIRIN [Concomitant]
     Active Substance: ASPIRIN
  13. AMBRISENTAN [Concomitant]
     Active Substance: AMBRISENTAN

REACTIONS (6)
  - Injection site mass [Unknown]
  - Dizziness [Unknown]
  - Injection site pruritus [Unknown]
  - Headache [Unknown]
  - Injection site erythema [Unknown]
  - Injection site swelling [Unknown]

NARRATIVE: CASE EVENT DATE: 20250101
